FAERS Safety Report 5703539-1 (Version None)
Quarter: 2008Q2

REPORT INFORMATION
  Report Type: 
  Country: None (occurrence: None)
  Receive Date: 20080409
  Receipt Date: 20080402
  Transmission Date: 20081010
  Serious: Yes (Other)
  Sender: FDA-Public Use
  Company Number: 2008008171

PATIENT
  Age: 35 Year
  Sex: Female
  Weight: 48.0813 kg

DRUGS (2)
  1. LUBRIDERM DAILY MOISTURE (NO ACTIVE INGREDIENT) [Suspect]
     Dosage: COVER WHOLE FACE, ONCE, BEFORE BED, TOPICAL
     Route: 061
     Dates: start: 20080401, end: 20080401
  2. LEXAPRO [Concomitant]

REACTIONS (2)
  - EYE SWELLING [None]
  - SWELLING FACE [None]
